FAERS Safety Report 10501419 (Version 1)
Quarter: 2014Q4

REPORT INFORMATION
  Report Type: Spontaneous
  Country: US (occurrence: None)
  Receive Date: 20141006
  Receipt Date: 20141006
  Transmission Date: 20150528
  Serious: Yes (Life-Threatening, Hospitalization)
  Sender: FDA-Public Use
  Company Number: None

PATIENT
  Age: 64 Year
  Sex: Male
  Weight: 86.18 kg

DRUGS (1)
  1. AZTREONAM INJECTION [Suspect]
     Active Substance: AZTREONAM
     Indication: PNEUMONIA
     Dosage: ONE DOSE

REACTIONS (11)
  - Burning sensation [None]
  - Swelling face [None]
  - Erythema [None]
  - Oral discomfort [None]
  - Pulse absent [None]
  - Local swelling [None]
  - Oral mucosal erythema [None]
  - Ear discomfort [None]
  - Eye movement disorder [None]
  - Respiratory arrest [None]
  - Peripheral swelling [None]

NARRATIVE: CASE EVENT DATE: 20141004
